FAERS Safety Report 18696327 (Version 1)
Quarter: 2021Q1

REPORT INFORMATION
  Report Type: Spontaneous
  Country: CN (occurrence: CN)
  Receive Date: 20210104
  Receipt Date: 20210104
  Transmission Date: 20210419
  Serious: Yes (Death, Other)
  Sender: FDA-Public Use
  Company Number: CN-OTSUKA-2021_000097

PATIENT

DRUGS (17)
  1. CYTARABINE. [Suspect]
     Active Substance: CYTARABINE
     Indication: ALLOGENIC STEM CELL TRANSPLANTATION
  2. SEMUSTINE [Suspect]
     Active Substance: SEMUSTINE
     Indication: ALLOGENIC STEM CELL TRANSPLANTATION
  3. BUSULFAN. [Suspect]
     Active Substance: BUSULFAN
     Indication: MYELODYSPLASTIC SYNDROME
  4. HYDROXYCARBAMIDE [Suspect]
     Active Substance: HYDROXYUREA
     Indication: BONE MARROW CONDITIONING REGIMEN
     Dosage: 40 MG/KG, TOTAL DOSE (DAY ?10)
     Route: 048
  5. HYDROXYCARBAMIDE [Suspect]
     Active Substance: HYDROXYUREA
     Indication: ALLOGENIC STEM CELL TRANSPLANTATION
  6. CYCLOPHOSPHAMIDE. [Suspect]
     Active Substance: CYCLOPHOSPHAMIDE
     Indication: MYELODYSPLASTIC SYNDROME
  7. CYTARABINE. [Suspect]
     Active Substance: CYTARABINE
     Indication: BONE MARROW CONDITIONING REGIMEN
     Dosage: 2 G/M2, (DAY ?9)
     Route: 042
  8. CYTARABINE. [Suspect]
     Active Substance: CYTARABINE
     Indication: MYELODYSPLASTIC SYNDROME
  9. HYDROXYCARBAMIDE [Suspect]
     Active Substance: HYDROXYUREA
     Indication: MYELODYSPLASTIC SYNDROME
  10. CYCLOPHOSPHAMIDE. [Suspect]
     Active Substance: CYCLOPHOSPHAMIDE
     Indication: ALLOGENIC STEM CELL TRANSPLANTATION
  11. SEMUSTINE [Suspect]
     Active Substance: SEMUSTINE
     Indication: MYELODYSPLASTIC SYNDROME
  12. METHOTREXATE. [Suspect]
     Active Substance: METHOTREXATE
     Indication: PROPHYLAXIS AGAINST GRAFT VERSUS HOST DISEASE
     Dosage: UNK
     Route: 065
  13. BUSULFAN. [Suspect]
     Active Substance: BUSULFAN
     Indication: ALLOGENIC STEM CELL TRANSPLANTATION
  14. SEMUSTINE [Suspect]
     Active Substance: SEMUSTINE
     Indication: BONE MARROW CONDITIONING REGIMEN
     Dosage: 250 MG/M2, (DAY ?3)
     Route: 048
  15. CYCLOSPORIN A [Suspect]
     Active Substance: CYCLOSPORINE
     Indication: PROPHYLAXIS AGAINST GRAFT VERSUS HOST DISEASE
     Dosage: UNK
     Route: 065
  16. BUSULFAN. [Suspect]
     Active Substance: BUSULFAN
     Indication: BONE MARROW CONDITIONING REGIMEN
     Dosage: 0.8 MG/KG, QID (DAYS ?8 TO ?6)
     Route: 042
  17. CYCLOPHOSPHAMIDE. [Suspect]
     Active Substance: CYCLOPHOSPHAMIDE
     Indication: BONE MARROW CONDITIONING REGIMEN
     Dosage: 1.8 G/M2 (DAY ?5 TO ?4)
     Route: 042

REACTIONS (2)
  - Pneumonia [Fatal]
  - Renal failure [Fatal]
